FAERS Safety Report 24615806 (Version 1)
Quarter: 2024Q4

REPORT INFORMATION
  Report Type: Spontaneous
  Country: FI (occurrence: FI)
  Receive Date: 20241113
  Receipt Date: 20241113
  Transmission Date: 20250115
  Serious: Yes (Disabling)
  Sender: TEVA
  Company Number: None

PATIENT
  Age: 42 Year

DRUGS (4)
  1. METFORMIN [Suspect]
     Active Substance: METFORMIN HYDROCHLORIDE
     Indication: Type 2 diabetes mellitus
     Dosage: 1 TABLET IN THE MORNING FOR 1 WEEK, AFTER THAT 1 TABLET TWICE A DAY FOR 1 WEEK, AFTER THAT 2+1 FO...
     Route: 048
     Dates: start: 20240924
  2. ATOMOXETINE HYDROCHLORIDE [Suspect]
     Active Substance: ATOMOXETINE HYDROCHLORIDE
     Indication: Attention deficit hyperactivity disorder
     Dosage: 100 MG/DAY, LOT XEM2300301C
     Route: 048
     Dates: start: 20231013
  3. CANDESARTAN [Concomitant]
     Active Substance: CANDESARTAN
     Indication: Hypertension
     Dosage: 1 TABLET (16 MG) ORALLY ONCE A DAY, IN THE MORNING. 0.5 TABL FOR 1 WEEK AND THEN 1 TABL ONCE A DAY
     Route: 048
     Dates: start: 20231211
  4. FENOFIBRATE [Concomitant]
     Active Substance: FENOFIBRATE
     Indication: Dyslipidaemia
     Dosage: 1 TABLET (145 MG) ORALLY ONCE A DAY.
     Route: 048
     Dates: start: 20231220

REACTIONS (6)
  - Stress [Recovering/Resolving]
  - Anxiety [Recovering/Resolving]
  - Disturbance in attention [Recovering/Resolving]
  - Potentiating drug interaction [Recovering/Resolving]
  - Nausea [Recovering/Resolving]
  - Feeling cold [Recovering/Resolving]

NARRATIVE: CASE EVENT DATE: 20241001
